FAERS Safety Report 18465229 (Version 2)
Quarter: 2020Q4

REPORT INFORMATION
  Report Type: Spontaneous
  Country: US (occurrence: US)
  Receive Date: 20201105
  Receipt Date: 20201118
  Transmission Date: 20210114
  Serious: Yes (Other)
  Sender: FDA-Public Use
  Company Number: US-DRREDDYS-USA/USA/20/0128764

PATIENT
  Age: 77 Year
  Sex: Female

DRUGS (3)
  1. IMATINIB MESYLATE TABLETS [Suspect]
     Active Substance: IMATINIB MESYLATE
  2. IMATINIB MESYLATE TABLETS [Suspect]
     Active Substance: IMATINIB MESYLATE
     Indication: GASTROINTESTINAL STROMAL TUMOUR
  3. IMATINIB MESYLATE TABLETS [Suspect]
     Active Substance: IMATINIB MESYLATE

REACTIONS (2)
  - Rash maculo-papular [Recovered/Resolved]
  - Skin hyperpigmentation [Recovered/Resolved]
